FAERS Safety Report 6448395-1 (Version None)
Quarter: 2009Q4

REPORT INFORMATION
  Report Type: 
  Country: None (occurrence: None)
  Receive Date: 20091120
  Receipt Date: 20091109
  Transmission Date: 20100525
  Serious: Yes (Hospitalization)
  Sender: FDA-Public Use
  Company Number: PHBS2007JP08367

PATIENT
  Sex: Male
  Weight: 3.17 kg

DRUGS (3)
  1. TEGRETOL [Suspect]
     Dosage: MATERNAL DOSE 400 MG/DAY
     Route: 064
  2. FLUTIDE [Concomitant]
     Indication: ASTHMA
     Route: 064
  3. SEREVENT [Concomitant]
     Route: 064

REACTIONS (7)
  - APNOEIC ATTACK [None]
  - CONVULSION [None]
  - CYANOSIS [None]
  - DRUG EXPOSURE DURING PREGNANCY [None]
  - INTRAVENTRICULAR HAEMORRHAGE NEONATAL [None]
  - NAUSEA [None]
  - VITAMIN K DEFICIENCY [None]
